FAERS Safety Report 25198368 (Version 1)
Quarter: 2025Q2

REPORT INFORMATION
  Report Type: Other
  Country: GB (occurrence: GB)
  Receive Date: 20250415
  Receipt Date: 20250415
  Transmission Date: 20250716
  Serious: Yes (Life-Threatening, Other)
  Sender: GLENMARK
  Company Number: None

PATIENT
  Age: 40 Year
  Sex: Female
  Weight: 70 kg

DRUGS (18)
  1. ZOLMITRIPTAN [Suspect]
     Active Substance: ZOLMITRIPTAN
     Indication: Migraine
     Route: 065
     Dates: start: 2019
  2. ZOLMITRIPTAN [Suspect]
     Active Substance: ZOLMITRIPTAN
     Route: 065
     Dates: start: 20250207, end: 20250307
  3. SOLIFENACIN [Concomitant]
     Active Substance: SOLIFENACIN
     Indication: Pollakiuria
     Dosage: UNK, QD (TAKE TWO DAILY)
     Route: 065
     Dates: start: 20241031
  4. PREGABALIN [Concomitant]
     Active Substance: PREGABALIN
     Indication: Back pain
     Dosage: UNK, BID (ONE TO BE TAKEN TWICE A DAY)
     Route: 065
  5. NAPROXEN [Concomitant]
     Active Substance: NAPROXEN
     Indication: Product used for unknown indication
     Route: 065
     Dates: start: 20241031
  6. LANSOPRAZOLE [Concomitant]
     Active Substance: LANSOPRAZOLE
     Indication: Product used for unknown indication
     Dosage: UNK, TAKE ONE ONCE DAILY
     Route: 065
     Dates: start: 20241213
  7. PIZOTYLINE [Concomitant]
     Active Substance: PIZOTYLINE
     Indication: Product used for unknown indication
     Dosage: UNK, QD (TO BE TAKEN EACH NIGHT)
     Route: 065
     Dates: start: 20250325
  8. CHOLECALCIFEROL [Concomitant]
     Active Substance: CHOLECALCIFEROL
     Indication: Product used for unknown indication
     Route: 065
     Dates: start: 20240127, end: 20250226
  9. SERTRALINE [Concomitant]
     Active Substance: SERTRALINE HYDROCHLORIDE
     Indication: Product used for unknown indication
     Dosage: UNK, QD (TAKE ONE DAILY)
     Route: 065
     Dates: start: 20240318
  10. ETORICOXIB [Concomitant]
     Active Substance: ETORICOXIB
     Indication: Product used for unknown indication
     Dosage: UNK, QD (TAKE ONE DAILY)
     Route: 065
     Dates: start: 20250325
  11. Otomize [Concomitant]
     Indication: Product used for unknown indication
     Dosage: UNK, TID
     Route: 065
     Dates: start: 20250212, end: 20250219
  12. FLUCLOXACILLIN [Concomitant]
     Active Substance: FLUCLOXACILLIN
     Indication: Product used for unknown indication
     Dosage: UNK, QID (TAKE ONE 4 TIMES/DAY)
     Route: 065
     Dates: start: 20240212, end: 20250219
  13. PROCHLORPERAZINE [Concomitant]
     Active Substance: PROCHLORPERAZINE
     Indication: Product used for unknown indication
     Dosage: UNK, QD (TAKE AT NIGHT BEFORE BED, USE SPARINGLY)
     Route: 065
     Dates: start: 20250311, end: 20250318
  14. HuxD3 [Concomitant]
     Indication: Product used for unknown indication
     Dosage: 2 DOSAGE FORM, QW (2 TABLETS PER WEEK FOR 7 WEEKS)
     Route: 065
     Dates: start: 20240318, end: 20250319
  15. ZOPICLONE [Concomitant]
     Active Substance: ZOPICLONE
     Indication: Product used for unknown indication
     Dosage: 1 DOSAGE FORM, QD (ONE TABLET AT NIGHT AS REQUIRED.)
     Route: 065
  16. CYCLIZINE [Concomitant]
     Active Substance: CYCLIZINE
     Indication: Product used for unknown indication
     Route: 065
     Dates: start: 20240318, end: 20240319
  17. CANDESARTAN [Concomitant]
     Active Substance: CANDESARTAN
     Indication: Migraine prophylaxis
     Route: 065
     Dates: start: 20241031, end: 20250113
  18. SUMATRIPTAN [Concomitant]
     Active Substance: SUMATRIPTAN
     Indication: Product used for unknown indication
     Route: 065
     Dates: start: 20241031, end: 20250113

REACTIONS (3)
  - Tongue oedema [Recovered/Resolved]
  - Swollen tongue [Recovered/Resolved]
  - Dyspnoea [Recovered/Resolved]
